FAERS Safety Report 17133049 (Version 2)
Quarter: 2020Q1

REPORT INFORMATION
  Report Type: Spontaneous
  Country: BR (occurrence: BR)
  Receive Date: 20191210
  Receipt Date: 20200109
  Transmission Date: 20200409
  Serious: Yes (Other)
  Sender: FDA-Public Use
  Company Number: BR-ROCHE-2176777

PATIENT
  Sex: Male

DRUGS (5)
  1. ZOLPIDEM [Concomitant]
     Active Substance: ZOLPIDEM TARTRATE
     Indication: SLEEP DISORDER
  2. RIVOTRIL [Suspect]
     Active Substance: CLONAZEPAM
     Indication: PRODUCT USED FOR UNKNOWN INDICATION
     Route: 065
  3. DONAREN [Suspect]
     Active Substance: TRAZODONE HYDROCHLORIDE
     Indication: PRODUCT USED FOR UNKNOWN INDICATION
     Route: 065
  4. RIVOTRIL [Suspect]
     Active Substance: CLONAZEPAM
     Indication: PRODUCT USED FOR UNKNOWN INDICATION
     Route: 065
  5. RIVOTRIL [Suspect]
     Active Substance: CLONAZEPAM
     Dosage: AT AGE 18, DOSE INCREASED TO 2 MG FROM 0.5 MG
     Route: 065

REACTIONS (18)
  - Weight decreased [Recovered/Resolved]
  - Suicidal ideation [Recovered/Resolved]
  - Loss of libido [Not Recovered/Not Resolved]
  - Sensory disturbance [Recovering/Resolving]
  - Disturbance in attention [Recovering/Resolving]
  - Quality of life decreased [Not Recovered/Not Resolved]
  - Impaired reasoning [Recovering/Resolving]
  - Ill-defined disorder [Unknown]
  - Product prescribing error [Unknown]
  - Depression [Recovered/Resolved]
  - Intentional product misuse [Unknown]
  - Sleep apnoea syndrome [Unknown]
  - Irritability [Recovering/Resolving]
  - Therapeutic response shortened [Not Recovered/Not Resolved]
  - Personality change [Recovering/Resolving]
  - Confusional state [Not Recovered/Not Resolved]
  - Drug dependence [Not Recovered/Not Resolved]
  - Pain [Not Recovered/Not Resolved]
